FAERS Safety Report 6502280-5 (Version None)
Quarter: 2009Q4

REPORT INFORMATION
  Report Type: 
  Country: None (occurrence: None)
  Receive Date: 20091216
  Receipt Date: 20091106
  Transmission Date: 20100525
  Serious: No
  Sender: FDA-Public Use
  Company Number: US-ABBOTT-09P-163-0605835-00

PATIENT
  Sex: Female

DRUGS (3)
  1. TRILIPIX [Suspect]
     Indication: BLOOD TRIGLYCERIDES INCREASED
     Route: 048
  2. UNKNOWN ANTIFUNGAL [Concomitant]
     Indication: DRUG USE FOR UNKNOWN INDICATION
     Route: 061
  3. OTHER UNKNOWN MEDICATIONS [Concomitant]
     Indication: DRUG USE FOR UNKNOWN INDICATION

REACTIONS (1)
  - DIARRHOEA [None]
